FAERS Safety Report 16325907 (Version 1)
Quarter: 2019Q2

REPORT INFORMATION
  Report Type: Spontaneous
  Country: DE (occurrence: DE)
  Receive Date: 20190517
  Receipt Date: 20190517
  Transmission Date: 20190711
  Serious: Yes (Hospitalization, Other)
  Sender: FDA-Public Use
  Company Number: DE-ASTRAZENECA-2019SE70890

PATIENT
  Age: 57 Year
  Sex: Female

DRUGS (18)
  1. ERGENYL CHRONO [Interacting]
     Active Substance: VALPROIC ACID
     Route: 065
     Dates: start: 20091026, end: 20091215
  2. DOMINAL [Concomitant]
     Dates: start: 20091218
  3. REMERGIL [Concomitant]
     Active Substance: MIRTAZAPINE
     Dates: start: 20091127, end: 20091215
  4. ABILIFY [Concomitant]
     Active Substance: ARIPIPRAZOLE
     Dates: start: 20091226, end: 20100105
  5. ABILIFY [Concomitant]
     Active Substance: ARIPIPRAZOLE
     Dates: start: 20091226, end: 20100105
  6. TAVOR [Concomitant]
     Dosage: 0.5 MG TO 3 MG CONTINUOUS INTAKE
     Dates: start: 20090818
  7. RISPERDAL [Suspect]
     Active Substance: RISPERIDONE
     Route: 065
     Dates: start: 20090913, end: 20090913
  8. CITALOPRAM [Concomitant]
     Active Substance: CITALOPRAM HYDROBROMIDE
     Dates: start: 20091107, end: 20091204
  9. SEROQUEL [Suspect]
     Active Substance: QUETIAPINE FUMARATE
     Route: 065
     Dates: start: 20090818, end: 20091026
  10. SEROQUEL [Interacting]
     Active Substance: QUETIAPINE FUMARATE
     Route: 065
     Dates: start: 20091026, end: 20091120
  11. ERGENYL CHRONO [Interacting]
     Active Substance: VALPROIC ACID
     Route: 065
     Dates: start: 20091228
  12. ERGENYL CHRONO [Interacting]
     Active Substance: VALPROIC ACID
     Route: 065
     Dates: start: 20091215, end: 20091227
  13. RISPERDAL [Suspect]
     Active Substance: RISPERIDONE
     Route: 065
     Dates: start: 20090917, end: 20091026
  14. ABILIFY [Concomitant]
     Active Substance: ARIPIPRAZOLE
     Dates: start: 20091226, end: 20100105
  15. ERGENYL CHRONO [Interacting]
     Active Substance: VALPROIC ACID
     Route: 065
     Dates: start: 20090902, end: 20091026
  16. DOMINAL [Concomitant]
     Dates: start: 20091218
  17. CITALOPRAM [Concomitant]
     Active Substance: CITALOPRAM HYDROBROMIDE
     Dates: start: 20091107, end: 20091204
  18. REMERGIL [Concomitant]
     Active Substance: MIRTAZAPINE
     Dates: start: 20091127, end: 20091215

REACTIONS (2)
  - Drug interaction [Recovering/Resolving]
  - Electrocardiogram QT prolonged [Recovering/Resolving]

NARRATIVE: CASE EVENT DATE: 20091021
